FAERS Safety Report 14893879 (Version 1)
Quarter: 2018Q2

REPORT INFORMATION
  Report Type: Report from Study
  Country: US (occurrence: US)
  Receive Date: 20180514
  Receipt Date: 20180514
  Transmission Date: 20180711
  Serious: Yes (Hospitalization)
  Sender: FDA-Public Use
  Company Number: US-ACTELION-A-US2018-170802

PATIENT
  Age: 62 Year
  Sex: Male

DRUGS (1)
  1. TRACLEER [Suspect]
     Active Substance: BOSENTAN
     Indication: RAYNAUD^S PHENOMENON
     Dosage: 62.5 MG, BID
     Route: 048
     Dates: start: 20180411, end: 20180421

REACTIONS (7)
  - Dyspnoea [Unknown]
  - No adverse event [Unknown]
  - Pulmonary oedema [Unknown]
  - Condition aggravated [Unknown]
  - Orthopnoea [Unknown]
  - Fluid retention [Unknown]
  - Product use in unapproved indication [Unknown]
